FAERS Safety Report 21500751 (Version 1)
Quarter: 2022Q4

REPORT INFORMATION
  Report Type: Spontaneous
  Country: US (occurrence: US)
  Receive Date: 20221025
  Receipt Date: 20221025
  Transmission Date: 20230113
  Serious: No
  Sender: FDA-Public Use
  Company Number: US-JNJFOC-20221031352

PATIENT
  Age: 79 Year
  Sex: Female
  Weight: 45.854 kg

DRUGS (3)
  1. OPSUMIT [Suspect]
     Active Substance: MACITENTAN
     Indication: Product used for unknown indication
     Route: 048
  2. TREPROSTINIL SODIUM [Suspect]
     Active Substance: TREPROSTINIL SODIUM
     Indication: Pulmonary arterial hypertension
     Route: 058
     Dates: start: 20210311, end: 2022
  3. DILTIAZEM [Suspect]
     Active Substance: DILTIAZEM
     Indication: Product used for unknown indication
     Route: 065

REACTIONS (9)
  - Infusion site pain [Recovering/Resolving]
  - Device dislocation [Unknown]
  - Chest pain [Recovering/Resolving]
  - Stress [Recovering/Resolving]
  - Dyspnoea [Unknown]
  - Somnolence [Unknown]
  - Dizziness [Unknown]
  - Arthritis [Unknown]
  - Balance disorder [Recovering/Resolving]
